FAERS Safety Report 6558091-8 (Version None)
Quarter: 2010Q1

REPORT INFORMATION
  Report Type: 
  Country: None (occurrence: None)
  Receive Date: 20100129
  Receipt Date: 20100126
  Transmission Date: 20100710
  Serious: Yes (Death)
  Sender: FDA-Public Use
  Company Number: A0797177A

PATIENT
  Age: 43 Year
  Sex: Male

DRUGS (3)
  1. PROMACTA [Suspect]
     Indication: THROMBOCYTOPENIA
     Dosage: 25MG PER DAY
     Route: 048
     Dates: start: 20090128, end: 20090406
  2. LASIX [Concomitant]
     Dates: start: 20070801
  3. ALDACTONE [Concomitant]
     Dates: start: 20070801

REACTIONS (6)
  - ABDOMINAL PAIN [None]
  - DEATH [None]
  - DIARRHOEA [None]
  - DRUG INEFFECTIVE [None]
  - EPISTAXIS [None]
  - NAUSEA [None]
